FAERS Safety Report 6540749-8 (Version None)
Quarter: 2010Q1

REPORT INFORMATION
  Report Type: 
  Country: None (occurrence: None)
  Receive Date: 20100118
  Receipt Date: 20100108
  Transmission Date: 20100710
  Serious: Yes (Hospitalization)
  Sender: FDA-Public Use
  Company Number: US-NOVOPROD-302938

PATIENT
  Age: 64 Year
  Sex: Female

DRUGS (2)
  1. NOVOSEVEN [Suspect]
     Indication: HAEMORRHAGE INTRACRANIAL
     Dosage: 4.8 MG, SINGLE
     Route: 042
     Dates: start: 20100105, end: 20100105
  2. COUMADIN [Concomitant]
     Indication: STENT PLACEMENT
     Dosage: UNK

REACTIONS (1)
  - INTERNATIONAL NORMALISED RATIO INCREASED [None]
